FAERS Safety Report 13409236 (Version 4)
Quarter: 2022Q3

REPORT INFORMATION
  Report Type: Spontaneous
  Country: US (occurrence: US)
  Receive Date: 20170406
  Receipt Date: 20220912
  Transmission Date: 20221027
  Serious: Yes (Other)
  Sender: FDA-Public Use
  Company Number: US-JNJFOC-20170117162

PATIENT
  Age: 1 Decade
  Sex: Male

DRUGS (9)
  1. RISPERDAL [Suspect]
     Active Substance: RISPERIDONE
     Indication: Autism spectrum disorder
     Route: 048
     Dates: start: 20060804
  2. RISPERDAL [Suspect]
     Active Substance: RISPERIDONE
     Indication: Oppositional defiant disorder
     Route: 048
     Dates: start: 20070403, end: 20070921
  3. RISPERDAL [Suspect]
     Active Substance: RISPERIDONE
     Indication: Intentional self-injury
     Route: 048
     Dates: start: 20110531
  4. RISPERDAL [Suspect]
     Active Substance: RISPERIDONE
     Dosage: VARIABLE DOSES OF 0.5 MG AND 0.25 MG
     Route: 048
     Dates: start: 20111122, end: 20130611
  5. RISPERDAL [Suspect]
     Active Substance: RISPERIDONE
     Route: 048
     Dates: start: 20140113
  6. RISPERIDONE [Suspect]
     Active Substance: RISPERIDONE
     Indication: Autism spectrum disorder
     Dosage: IN VARYING DOSE OF 0.25 AND 0.5 MG
     Route: 048
     Dates: start: 20111128, end: 20130507
  7. RISPERIDONE [Suspect]
     Active Substance: RISPERIDONE
     Indication: Oppositional defiant disorder
  8. RISPERDAL M-TAB [Suspect]
     Active Substance: RISPERIDONE
     Indication: Product used for unknown indication
     Route: 048
  9. RISPERIDONE [Suspect]
     Active Substance: RISPERIDONE
     Indication: Product used for unknown indication
     Route: 065

REACTIONS (3)
  - Obesity [Unknown]
  - Emotional distress [Unknown]
  - Gynaecomastia [Unknown]

NARRATIVE: CASE EVENT DATE: 20080101
